FAERS Safety Report 11910646 (Version 1)
Quarter: 2016Q1

REPORT INFORMATION
  Report Type: Spontaneous
  Country: US (occurrence: None)
  Receive Date: 20160111
  Receipt Date: 20160111
  Transmission Date: 20160526
  Serious: Yes (Death)
  Sender: FDA-Public Use
  Company Number: None

PATIENT
  Age: 63 Year
  Sex: Male

DRUGS (4)
  1. TEMOZOLOMIDE 180MG CAPSULE [Suspect]
     Active Substance: TEMOZOLOMIDE
     Indication: METASTASIS
     Dosage: 360 MG DAYS 10-14 ORAL
     Route: 048
     Dates: start: 20151002, end: 201512
  2. TEMOZOLOMIDE 180MG CAPSULE [Suspect]
     Active Substance: TEMOZOLOMIDE
     Indication: CARCINOID TUMOUR
     Dosage: 360 MG DAYS 10-14 ORAL
     Route: 048
     Dates: start: 20151002, end: 201512
  3. CAPECITABINE 500MG TAB [Suspect]
     Active Substance: CAPECITABINE
     Indication: METASTASIS
     Dosage: 1000MG IN AM + 500MG IN THE PM DAYS 1-14 ORAL
     Route: 048
     Dates: start: 20151002, end: 201512
  4. CAPECITABINE 500MG TAB [Suspect]
     Active Substance: CAPECITABINE
     Indication: CARCINOID TUMOUR
     Dosage: 1000MG IN AM + 500MG IN THE PM DAYS 1-14 ORAL
     Route: 048
     Dates: start: 20151002, end: 201512

REACTIONS (1)
  - Death [None]

NARRATIVE: CASE EVENT DATE: 20151228
